FAERS Safety Report 9761339 (Version 1)
Quarter: 2013Q4

REPORT INFORMATION
  Report Type: Spontaneous
  Country: US (occurrence: US)
  Receive Date: 20131216
  Receipt Date: 20131216
  Transmission Date: 20140711
  Serious: No
  Sender: FDA-Public Use
  Company Number: US-009507513-1312USA006894

PATIENT
  Age: 81 Year
  Sex: Male

DRUGS (8)
  1. AZASITE [Suspect]
     Dosage: 2 DROPS ON HIS FINGER AND THEN SMEARED ON THE EYELASHES OF BOTH EYES, NIGHTLY
     Route: 047
     Dates: start: 201212
  2. DOXYCYCLINE [Suspect]
  3. HYDROCHLOROTHIAZIDE [Concomitant]
  4. L-THYROXIN [Concomitant]
  5. OMEPRAZOLE [Concomitant]
  6. LISINOPRIL [Concomitant]
  7. SIMVASTATIN [Concomitant]
  8. FINASTERIDE [Concomitant]

REACTIONS (5)
  - Angina pectoris [Unknown]
  - Drug dose omission [Unknown]
  - Drug administration error [Unknown]
  - Inappropriate schedule of drug administration [Unknown]
  - Dry eye [Not Recovered/Not Resolved]
